FAERS Safety Report 18926482 (Version 1)
Quarter: 2021Q1

REPORT INFORMATION
  Report Type: Spontaneous
  Country: CA (occurrence: CA)
  Receive Date: 20210223
  Receipt Date: 20210223
  Transmission Date: 20210420
  Serious: Yes (Disabling)
  Sender: FDA-Public Use
  Company Number: CA-PFIZER INC-2021153816

PATIENT
  Sex: Male

DRUGS (1)
  1. BEVACIZUMAB. [Suspect]
     Active Substance: BEVACIZUMAB
     Dosage: UNK
     Route: 042

REACTIONS (1)
  - Glaucoma [Not Recovered/Not Resolved]
